FAERS Safety Report 6035228-0 (Version None)
Quarter: 2009Q1

REPORT INFORMATION
  Report Type: 
  Country: None (occurrence: None)
  Receive Date: 20090112
  Receipt Date: 20090108
  Transmission Date: 20090719
  Serious: Yes (Hospitalization)
  Sender: FDA-Public Use
  Company Number: DE-ABBOTT-08P-062-0485614-00

PATIENT
  Sex: Female

DRUGS (9)
  1. HUMIRA [Suspect]
     Indication: CROHN'S DISEASE
     Route: 058
     Dates: start: 20080814
  2. PANTOZOL [Concomitant]
     Indication: GASTRITIS
  3. ONAZID [Concomitant]
     Indication: DRUG USE FOR UNKNOWN INDICATION
  4. OXYGESIC [Concomitant]
     Indication: ARTHRITIS
  5. OXYGESIC [Concomitant]
     Indication: NEURODERMATITIS
  6. FENTANYL [Concomitant]
     Indication: ARTHRITIS
  7. FENTANYL [Concomitant]
     Indication: NEURODERMATITIS
  8. CYMBALTA [Concomitant]
     Indication: ARTHRITIS
  9. CYMBALTA [Concomitant]
     Indication: NEURODERMATITIS

REACTIONS (3)
  - FISTULA [None]
  - GASTROINTESTINAL DISORDER [None]
  - PAIN [None]
